FAERS Safety Report 22332914 (Version 1)
Quarter: 2023Q2

REPORT INFORMATION
  Report Type: Spontaneous
  Country: US (occurrence: None)
  Receive Date: 20230516
  Receipt Date: 20230516
  Transmission Date: 20230722
  Serious: No
  Sender: FDA-Public Use
  Company Number: None

PATIENT
  Age: 68 Year
  Sex: Male
  Weight: 67.13 kg

DRUGS (16)
  1. ERLEADA [Suspect]
     Active Substance: APALUTAMIDE
     Indication: Prostate cancer
     Dosage: FREQUENCY : DAILY;?
     Route: 048
     Dates: start: 202304, end: 20230516
  2. ASPIRIN [Concomitant]
     Active Substance: ASPIRIN
  3. CALCIUM\CHOLECALCIFEROL [Concomitant]
     Active Substance: CALCIUM\CHOLECALCIFEROL
  4. EFFEXOR [Concomitant]
     Active Substance: VENLAFAXINE HYDROCHLORIDE
  5. HYDROCHLOROTHIAZIDE [Concomitant]
     Active Substance: HYDROCHLOROTHIAZIDE
  6. NORCO [Concomitant]
     Active Substance: ACETAMINOPHEN\HYDROCODONE BITARTRATE
  7. KETOCONAZOLE [Concomitant]
     Active Substance: KETOCONAZOLE
  8. MIRTAZAPINE [Concomitant]
     Active Substance: MIRTAZAPINE
  9. MUCINEX [Concomitant]
     Active Substance: GUAIFENESIN
  10. OXCARBAZEPINE [Concomitant]
     Active Substance: OXCARBAZEPINE
  11. PHENYTOIN [Concomitant]
     Active Substance: PHENYTOIN
  12. PREDNISONE [Concomitant]
     Active Substance: PREDNISONE
  13. PRO CHLORPERAZINE [Concomitant]
  14. STOOL SOFTNER [Concomitant]
  15. VIMPAT [Concomitant]
     Active Substance: LACOSAMIDE
  16. VITAMIN D3 [Concomitant]

REACTIONS (6)
  - Seizure [None]
  - Swelling face [None]
  - Fall [None]
  - Dermatitis [None]
  - Pruritus [None]
  - Therapy interrupted [None]
